FAERS Safety Report 14700039 (Version 1)
Quarter: 2018Q1

REPORT INFORMATION
  Report Type: Spontaneous
  Country: US (occurrence: US)
  Receive Date: 20180330
  Receipt Date: 20180330
  Transmission Date: 20180509
  Serious: No
  Sender: FDA-Public Use
  Company Number: US-ZYDUS-019076

PATIENT
  Age: 3 Year
  Sex: Female

DRUGS (1)
  1. OSELTAMIVIR/OSELTAMIVIR PHOSPHATE [Suspect]
     Active Substance: OSELTAMIVIR PHOSPHATE
     Indication: INFLUENZA
     Dosage: OSELTAMIVIR 6MG/ML, 30 MG (5ML) ONCE DAILY FOR 5 DAYS
     Route: 048
     Dates: start: 20180131

REACTIONS (1)
  - Vomiting [Unknown]

NARRATIVE: CASE EVENT DATE: 20180131
